FAERS Safety Report 7999398-7 (Version None)
Quarter: 2011Q4

REPORT INFORMATION
  Report Type: 
  Country: None (occurrence: None)
  Receive Date: 20111221
  Receipt Date: 20111212
  Transmission Date: 20120403
  Serious: Yes (Hospitalization, Other)
  Sender: FDA-Public Use
  Company Number: US-ELI_LILLY_AND_COMPANY-US201107006533

PATIENT
  Sex: Male
  Weight: 92.971 kg

DRUGS (1)
  1. BYETTA [Suspect]
     Indication: PRODUCT USED FOR UNKNOWN INDICATION
     Dosage: UNK
     Route: 058
     Dates: start: 20060101, end: 20070101

REACTIONS (3)
  - PANCREATITIS [None]
  - RENAL FAILURE CHRONIC [None]
  - RENAL FAILURE ACUTE [None]
